FAERS Safety Report 5418981-6 (Version None)
Quarter: 2007Q3

REPORT INFORMATION
  Report Type: 
  Country: None (occurrence: None)
  Receive Date: 20070817
  Receipt Date: 20070806
  Transmission Date: 20080115
  Serious: Yes (Other)
  Sender: FDA-Public Use
  Company Number: US-PFIZER INC-2007066450

PATIENT
  Sex: Female
  Weight: 81.6 kg

DRUGS (6)
  1. CHANTIX [Suspect]
     Indication: SMOKING CESSATION THERAPY
  2. PROZAC [Concomitant]
  3. EFFEXOR [Concomitant]
  4. FOLIC ACID [Concomitant]
  5. CALCIUM WITH VITAMIN D [Concomitant]
  6. VITAMIN CAP [Concomitant]

REACTIONS (4)
  - CONVULSION [None]
  - DIZZINESS [None]
  - EYE DISORDER [None]
  - HEADACHE [None]
